FAERS Safety Report 18385122 (Version 3)
Quarter: 2020Q4

REPORT INFORMATION
  Report Type: Report from Study
  Country: CA (occurrence: CA)
  Receive Date: 20201014
  Receipt Date: 20201202
  Transmission Date: 20210114
  Serious: Yes (Hospitalization)
  Sender: FDA-Public Use
  Company Number: CA-ROCHE-2689605

PATIENT

DRUGS (4)
  1. GEMCITABINE. [Suspect]
     Active Substance: GEMCITABINE
     Indication: B-CELL LYMPHOMA
     Dosage: DATE OF MOST RECENT DOSE OF GEMCITABINE PRIOR TO ONSET OF SAE ON 02/FEB/2016.
     Route: 042
     Dates: start: 20160127
  2. RITUXIMAB. [Suspect]
     Active Substance: RITUXIMAB
     Indication: B-CELL LYMPHOMA
     Dosage: ON 16/FEB/2016, MOST RECENT DOSE OF RITUXIMAB (760 MG) PRIOR TO SERIOUS ADVERSE EVENT (SAE) WAS ADMI
     Route: 042
     Dates: start: 20160126
  3. CISPLATIN. [Suspect]
     Active Substance: CISPLATIN
     Indication: B-CELL LYMPHOMA
     Dosage: DATE OF MOST RECENT DOSE OF CISPLATIN ADMINISTERED PRIOR TO ONSET OF SAE ON 16/FEB/2016.
     Route: 042
     Dates: start: 20160127
  4. DEXAMETHASONE. [Suspect]
     Active Substance: DEXAMETHASONE
     Indication: B-CELL LYMPHOMA
     Dosage: DATE OF MOST RECENT DOSE OF DEXAMETHASONE PRIOR TO ONSET OF SAE ON 20/FEB/2016.
     Route: 048
     Dates: start: 20160128

REACTIONS (1)
  - Lower gastrointestinal haemorrhage [Recovered/Resolved]

NARRATIVE: CASE EVENT DATE: 20160224
